FAERS Safety Report 8551376-5 (Version None)
Quarter: 2012Q3

REPORT INFORMATION
  Report Type: 
  Country: None (occurrence: None)
  Receive Date: 20120730
  Receipt Date: 20120103
  Transmission Date: 20120928
  Serious: No
  Sender: FDA-Public Use
  Company Number: US-ALLERGAN-1200005US

PATIENT
  Age: 48 Year
  Sex: Female

DRUGS (2)
  1. LATISSE [Suspect]
     Indication: HYPOTRICHOSIS
     Dosage: 4 GTT, QHS
     Route: 061
     Dates: start: 20111129
  2. LATISSE [Suspect]
     Indication: MADAROSIS

REACTIONS (1)
  - DRUG INEFFECTIVE [None]
